FAERS Safety Report 4983341-9 (Version None)
Quarter: 2006Q2

REPORT INFORMATION
  Report Type: 
  Country: None (occurrence: None)
  Receive Date: 20060426
  Receipt Date: 20050222
  Transmission Date: 20061013
  Serious: Yes (Hospitalization)
  Sender: FDA-Public Use
  Company Number: US-MERCK-0502USA03485

PATIENT
  Age: 27 Year
  Sex: Female
  Weight: 52 kg

DRUGS (9)
  1. VIOXX [Suspect]
     Indication: SYSTEMIC LUPUS ERYTHEMATOSUS
     Route: 048
     Dates: start: 20000101, end: 20010601
  2. VIOXX [Suspect]
     Route: 048
     Dates: start: 20000101, end: 20010601
  3. VIOXX [Suspect]
     Indication: PAIN
     Route: 048
     Dates: start: 20000101, end: 20010601
  4. VIOXX [Suspect]
     Route: 048
     Dates: start: 20000101, end: 20010601
  5. ADALAT [Concomitant]
     Route: 065
  6. PRILOSEC [Concomitant]
     Route: 065
  7. DILAUDID [Concomitant]
     Route: 065
  8. ACYCLOVIR [Concomitant]
     Route: 065
  9. PREDNISONE [Concomitant]
     Route: 065

REACTIONS (33)
  - ACUTE RESPIRATORY DISTRESS SYNDROME [None]
  - ADVERSE EVENT [None]
  - ANAEMIA [None]
  - ANTINEUTROPHIL CYTOPLASMIC ANTIBODY POSITIVE [None]
  - ASTHENIA [None]
  - CARDIO-RESPIRATORY ARREST [None]
  - CHEST PAIN [None]
  - CYTOMEGALOVIRUS CHORIORETINITIS [None]
  - DRY GANGRENE [None]
  - GANGRENE [None]
  - GRAND MAL CONVULSION [None]
  - HEADACHE [None]
  - HERPES ZOSTER [None]
  - HYPERTENSION [None]
  - HYPOAESTHESIA [None]
  - INSOMNIA [None]
  - INTERSTITIAL LUNG DISEASE [None]
  - LOBAR PNEUMONIA [None]
  - LUNG ABSCESS [None]
  - OEDEMA PERIPHERAL [None]
  - PAIN [None]
  - PERIPHERAL VASCULAR DISORDER [None]
  - PLEURAL EFFUSION [None]
  - PYREXIA [None]
  - RAYNAUD'S PHENOMENON [None]
  - RELAPSING FEVER [None]
  - RENAL FAILURE [None]
  - RETINAL DETACHMENT [None]
  - SCLERODERMA [None]
  - SYSTEMIC LUPUS ERYTHEMATOSUS [None]
  - ULCER [None]
  - VASCULITIS [None]
  - WOUND DEHISCENCE [None]
